FAERS Safety Report 25686127 (Version 1)
Quarter: 2025Q3

REPORT INFORMATION
  Report Type: Spontaneous
  Country: US (occurrence: None)
  Receive Date: 20250815
  Receipt Date: 20250815
  Transmission Date: 20251021
  Serious: Yes (Disabling)
  Sender: FDA-CTU
  Company Number: None

PATIENT
  Age: 47 Year
  Sex: Male
  Weight: 68 kg

DRUGS (8)
  1. EBASTINE [Suspect]
     Active Substance: EBASTINE
     Indication: Eczema
     Dates: start: 20250808, end: 20250814
  2. LEVOCETIRIZINE [Suspect]
     Active Substance: LEVOCETIRIZINE
  3. HALOMETASONE\TRICLOSAN [Suspect]
     Active Substance: HALOMETASONE\TRICLOSAN
  4. amplodipine [Concomitant]
  5. irbesarten [Concomitant]
  6. METOPROLOL [Concomitant]
     Active Substance: METOPROLOL
  7. multivitamins with ^live friendly bacteria^ [Concomitant]
  8. VITAMIN D [Concomitant]
     Active Substance: VITAMIN D NOS

REACTIONS (2)
  - Herpes zoster [None]
  - Immune system disorder [None]

NARRATIVE: CASE EVENT DATE: 20250811
